FAERS Safety Report 10141624 (Version 2)
Quarter: 2014Q2

REPORT INFORMATION
  Report Type: Spontaneous
  Country: TR (occurrence: TR)
  Receive Date: 20140429
  Receipt Date: 20140508
  Transmission Date: 20141212
  Serious: Yes (Life-Threatening, Other)
  Sender: FDA-Public Use
  Company Number: PHHY2014TR052080

PATIENT
  Age: 46 Year
  Sex: Male
  Weight: 76 kg

DRUGS (11)
  1. CERTICAN [Suspect]
     Indication: LIVER TRANSPLANT
     Dosage: 0.25 MG, BID
  2. PROGRAF [Concomitant]
     Dosage: UNK UKN, 2X3
  3. MAGNORM [Concomitant]
     Dosage: UNK UKN, 2X1
  4. DELTA CORTELAN [Concomitant]
     Dosage: UNK UKN, 1X4
  5. URSOFALK [Concomitant]
     Dosage: UNK UKN, 3X1
  6. PANTPAS [Concomitant]
     Dosage: UNK UKN, 1X1
  7. CORASPIN [Concomitant]
     Dosage: UNK UKN, 1X1
  8. VALCYTE [Concomitant]
     Dosage: UNK UKN, 1X1
  9. BACTRIM [Concomitant]
     Dosage: UNK UKN, 1X1
  10. DIDERAL [Concomitant]
     Dosage: UNK UKN, 2X1/2
  11. MIKOSTATIN [Concomitant]
     Dosage: UNK UKN, 3X10 DROP

REACTIONS (2)
  - Hepatic artery thrombosis [Recovered/Resolved with Sequelae]
  - Aortic occlusion [Unknown]
